FAERS Safety Report 9132206 (Version 2)
Quarter: 2013Q2

REPORT INFORMATION
  Report Type: Spontaneous
  Country: US (occurrence: US)
  Receive Date: 20130301
  Receipt Date: 20130412
  Transmission Date: 20140414
  Serious: Yes (Other)
  Sender: FDA-Public Use
  Company Number: US-FRI-1000042824

PATIENT
  Age: 40 Year
  Sex: Female

DRUGS (20)
  1. LINZESS [Suspect]
     Indication: CONSTIPATION
     Dosage: 290 MCG
     Route: 048
     Dates: start: 201301, end: 201302
  2. LINZESS [Suspect]
     Dosage: 290 MCG
     Route: 048
     Dates: start: 201302
  3. MAGNESIUM CITRATE [Suspect]
     Indication: CONSTIPATION
     Dates: end: 20130222
  4. MIRALAX [Suspect]
     Indication: FAECES HARD
     Dates: start: 201303
  5. COLACE [Suspect]
     Indication: FAECES HARD
     Dates: start: 201303
  6. FIBER [Suspect]
     Indication: FAECES HARD
     Dates: start: 201303
  7. MINERAL OIL [Suspect]
     Indication: FAECES HARD
     Dates: start: 201303
  8. SEROQUEL [Concomitant]
     Indication: INSOMNIA
     Dosage: 100 MG IN AM, 300 MG QHS
  9. SEROQUEL [Concomitant]
     Indication: ANXIETY
  10. XANAX XR [Concomitant]
     Dosage: 10 MG
  11. LORAZEPAM [Concomitant]
  12. TRAZODONE [Concomitant]
     Indication: INSOMNIA
     Dosage: 300 MG
  13. AMBIEN [Concomitant]
     Indication: INSOMNIA
  14. OXYCODONE [Concomitant]
     Indication: INTERVERTEBRAL DISC PROTRUSION
  15. OXYCODONE [Concomitant]
     Indication: SPINAL OSTEOARTHRITIS
  16. SOMA [Concomitant]
  17. EFFEXOR XR [Concomitant]
     Indication: DEPRESSION
     Dosage: QAM
  18. VITAMIN D [Concomitant]
  19. VITAMIN B12 [Concomitant]
  20. BIOTIN [Concomitant]

REACTIONS (6)
  - Anal fissure [Recovered/Resolved]
  - Diarrhoea [Recovered/Resolved]
  - Flatulence [Not Recovered/Not Resolved]
  - Faeces hard [Recovered/Resolved]
  - Drug ineffective [Unknown]
  - Abdominal distension [Not Recovered/Not Resolved]
